FAERS Safety Report 25877737 (Version 1)
Quarter: 2025Q4

REPORT INFORMATION
  Report Type: Other
  Country: TR (occurrence: TR)
  Receive Date: 20251003
  Receipt Date: 20251003
  Transmission Date: 20260117
  Serious: Yes (Hospitalization)
  Sender: EMD SERONO INC
  Company Number: TR-Merck Healthcare KGaA-2025048820

PATIENT
  Age: 9 Year
  Sex: Female

DRUGS (1)
  1. LEVOTHYROXINE [Suspect]
     Active Substance: LEVOTHYROXINE
     Indication: Autoimmune thyroiditis

REACTIONS (2)
  - Decompensated hypothyroidism [Recovered/Resolved]
  - Treatment noncompliance [Unknown]
